APPROVED DRUG PRODUCT: IMAGENT
Active Ingredient: PERFLUBRON
Strength: 100%
Dosage Form/Route: LIQUID;ORAL
Application: N020091 | Product #001
Applicant: ALLIANCE PHARMACEUTICAL CORP
Approved: Aug 13, 1993 | RLD: No | RS: No | Type: DISCN